FAERS Safety Report 21037877 (Version 1)
Quarter: 2022Q3

REPORT INFORMATION
  Report Type: Spontaneous
  Country: US (occurrence: US)
  Receive Date: 20220704
  Receipt Date: 20220704
  Transmission Date: 20221026
  Serious: Yes (Other)
  Sender: FDA-Public Use
  Company Number: US-drreddys-LIT/USA/22/0151751

PATIENT
  Sex: Male

DRUGS (14)
  1. RISPERIDONE [Suspect]
     Active Substance: RISPERIDONE
     Indication: Autism spectrum disorder
  2. QUETIAPINE [Suspect]
     Active Substance: QUETIAPINE
     Indication: Autism spectrum disorder
  3. MEMANTINE HYDROCHLORIDE [Suspect]
     Active Substance: MEMANTINE HYDROCHLORIDE
     Indication: Autism spectrum disorder
  4. ZOLPIDEM [Suspect]
     Active Substance: ZOLPIDEM TARTRATE
     Indication: Autism spectrum disorder
  5. LORAZEPAM [Suspect]
     Active Substance: LORAZEPAM
     Indication: Product used for unknown indication
  6. LORAZEPAM [Suspect]
     Active Substance: LORAZEPAM
     Dosage: GRADUALLY INCREASED TO 18 MG/DAY
  7. LORAZEPAM [Suspect]
     Active Substance: LORAZEPAM
  8. ARIPIPRAZOLE [Suspect]
     Active Substance: ARIPIPRAZOLE
     Indication: Autism spectrum disorder
  9. LITHIUM [Suspect]
     Active Substance: LITHIUM
     Indication: Autism spectrum disorder
  10. OXCARBAZEPINE [Suspect]
     Active Substance: OXCARBAZEPINE
     Indication: Autism spectrum disorder
  11. CLOBAZAM [Suspect]
     Active Substance: CLOBAZAM
     Indication: Autism spectrum disorder
  12. ACETYLCYSTEINE [Suspect]
     Active Substance: ACETYLCYSTEINE
     Indication: Autism spectrum disorder
  13. PRIVIGEN [Suspect]
     Active Substance: HUMAN IMMUNOGLOBULIN G
     Indication: Autism spectrum disorder
     Dosage: FOR THREE MONTHS
     Route: 042
  14. DEFLAZACORT [Suspect]
     Active Substance: DEFLAZACORT
     Indication: Autism spectrum disorder

REACTIONS (2)
  - Memory impairment [Unknown]
  - Drug ineffective [Unknown]
